FAERS Safety Report 10534222 (Version 2)
Quarter: 2014Q4

REPORT INFORMATION
  Report Type: Report from Study
  Country: BR (occurrence: BR)
  Receive Date: 20141022
  Receipt Date: 20141125
  Transmission Date: 20150529
  Serious: Yes (Other)
  Sender: FDA-Public Use
  Company Number: PHHY2014BR137612

PATIENT
  Sex: Female
  Weight: 68 kg

DRUGS (1)
  1. SANDOSTATIN LAR DEPOT [Suspect]
     Active Substance: OCTREOTIDE ACETATE
     Indication: ACROMEGALY
     Dosage: ONE AMPOULE EVERY 28 DAYS
     Route: 065
     Dates: end: 20140901

REACTIONS (2)
  - Heart valve incompetence [Recovered/Resolved]
  - Venous occlusion [Recovered/Resolved]
